FAERS Safety Report 4724482-0 (Version None)
Quarter: 2005Q3

REPORT INFORMATION
  Report Type: 
  Country: None (occurrence: None)
  Receive Date: 20050722
  Receipt Date: 20050722
  Transmission Date: 20060218
  Serious: Yes (Death, Hospitalization)
  Sender: FDA-Public Use
  Company Number: None

PATIENT
  Sex: Female
  Weight: 84 kg

DRUGS (8)
  1. VINCRISTINE [Suspect]
     Indication: ACUTE LYMPHOCYTIC LEUKAEMIA
     Dosage: SEE IMAGE
     Route: 042
     Dates: start: 20050420
  2. METHOTREXATE [Suspect]
     Dosage: SEE IMAGE
     Route: 042
     Dates: start: 20050420
  3. METHOTREXATE [Suspect]
     Dosage: SEE IMAGE
     Route: 037
     Dates: start: 20050420
  4. METHOTREXATE [Suspect]
     Dosage: SEE IMAGE
     Route: 048
     Dates: start: 20050420
  5. MERCAPTOPURINE [Suspect]
     Dosage: SEE IMAGE
     Route: 048
     Dates: start: 20050420
  6. LEUCOVORIN [Suspect]
     Dosage: SEE IMAGE
     Route: 042
     Dates: start: 20050420
  7. LEUCOVORIN [Suspect]
     Dosage: SEE IMAGE
     Route: 048
     Dates: start: 20050420
  8. COTRIMOXAZOLE DS [Suspect]
     Dosage: SEE IMAGE
     Route: 048
     Dates: start: 20050420

REACTIONS (8)
  - CLOSTRIDIUM DIFFICILE TOXIN TEST POSITIVE [None]
  - CONFUSIONAL STATE [None]
  - FATIGUE [None]
  - GENERAL PHYSICAL HEALTH DETERIORATION [None]
  - HYPERTENSION [None]
  - MENTAL STATUS CHANGES [None]
  - PAIN IN EXTREMITY [None]
  - SEPSIS [None]
